FAERS Safety Report 8333298-8 (Version None)
Quarter: 2012Q1

REPORT INFORMATION
  Report Type: 
  Country: None (occurrence: None)
  Receive Date: 20120327
  Receipt Date: 20110310
  Transmission Date: 20120608
  Serious: Yes (Other)
  Sender: FDA-Public Use
  Company Number: PHHY2011US19581

PATIENT
  Age: 64 Year
  Sex: Female
  Weight: 83 kg

DRUGS (27)
  1. PRAVASTATIN [Concomitant]
  2. MELOXICAM [Concomitant]
  3. HYDROCHLOROTHIAZIDE [Concomitant]
  4. CORDARONE [Concomitant]
  5. LASIX [Concomitant]
  6. PROPRANOLOL [Concomitant]
  7. DILTIAZEM [Concomitant]
  8. GLIMEPIRIDE [Concomitant]
  9. LISINOPRIL [Concomitant]
  10. LANTUS [Concomitant]
  11. GLYBURIDE [Concomitant]
  12. MIRAPEX [Concomitant]
  13. XANAX (ALPRAZXOLAM) [Concomitant]
  14. COUMADIN [Concomitant]
  15. MULTAQ [Concomitant]
  16. AMARYL [Concomitant]
  17. SYNTHROID [Concomitant]
  18. KLONOPIN [Concomitant]
  19. ASPIRIN [Concomitant]
  20. IRON (IRON) [Concomitant]
  21. GLEEVEC [Suspect]
     Indication: CHRONIC MYELOID LEUKAEMIA
     Dosage: 300 MG, QD, ORAL, 400 MG, ORAL, 300 MG, ORAL
     Route: 048
     Dates: start: 20090905
  22. GLEEVEC [Suspect]
     Indication: CHRONIC MYELOID LEUKAEMIA
     Dosage: 300 MG, QD, ORAL, 400 MG, ORAL, 300 MG, ORAL
     Route: 048
     Dates: start: 20100501, end: 20100501
  23. GLEEVEC [Suspect]
     Indication: CHRONIC MYELOID LEUKAEMIA
     Dosage: 300 MG, QD, ORAL, 400 MG, ORAL, 300 MG, ORAL
     Route: 048
     Dates: start: 20100501
  24. METFORMIN HCL [Concomitant]
  25. NEXIUM [Concomitant]
  26. CARAFATE [Concomitant]
  27. ZOLPIDEM [Concomitant]

REACTIONS (5)
  - CARDIAC FAILURE CONGESTIVE [None]
  - SWELLING [None]
  - PAIN IN EXTREMITY [None]
  - WEIGHT INCREASED [None]
  - PANCREATITIS [None]
